FAERS Safety Report 7334965-5 (Version None)
Quarter: 2011Q1

REPORT INFORMATION
  Report Type: 
  Country: None (occurrence: None)
  Receive Date: 20110302
  Receipt Date: 20110302
  Transmission Date: 20110831
  Serious: Yes (Other)
  Sender: FDA-Public Use
  Company Number: None

PATIENT
  Sex: Male
  Weight: 107.5025 kg

DRUGS (6)
  1. CARBOPLATIN [Suspect]
     Indication: NON-SMALL CELL LUNG CANCER
     Dosage: 300MG/WEEKLY/IV
     Route: 042
     Dates: start: 20101122
  2. CARBOPLATIN [Suspect]
     Indication: NON-SMALL CELL LUNG CANCER
     Dosage: 300MG/WEEKLY/IV
     Route: 042
     Dates: start: 20110103
  3. CARBOPLATIN [Suspect]
     Indication: NON-SMALL CELL LUNG CANCER
     Dosage: 300MG/WEEKLY/IV
     Route: 042
     Dates: start: 20110119
  4. CARBOPLATIN [Suspect]
     Indication: NON-SMALL CELL LUNG CANCER
     Dosage: 300MG/WEEKLY/IV
     Route: 042
     Dates: start: 20110126
  5. CARBOPLATIN [Suspect]
     Indication: NON-SMALL CELL LUNG CANCER
     Dosage: 300MG/WEEKLY/IV
     Route: 042
     Dates: start: 20101213
  6. CARBOPLATIN [Suspect]
     Indication: NON-SMALL CELL LUNG CANCER
     Dosage: 300MG/WEEKLY/IV
     Route: 042
     Dates: start: 20110112

REACTIONS (5)
  - INFUSION RELATED REACTION [None]
  - HEART RATE INCREASED [None]
  - FEELING HOT [None]
  - DYSPNOEA [None]
  - FLUSHING [None]
